FAERS Safety Report 9282275 (Version 1)
Quarter: 2013Q2

REPORT INFORMATION
  Report Type: Spontaneous
  Country: US (occurrence: None)
  Receive Date: 20130509
  Receipt Date: 20130509
  Transmission Date: 20140414
  Serious: Yes (Other)
  Sender: FDA-Public Use
  Company Number: None

PATIENT
  Age: 36 Year
  Sex: Male

DRUGS (26)
  1. ANTITHYMOCYTE GLOBULIN [Suspect]
     Indication: DRUG-INDUCED LIVER INJURY
     Dates: start: 20060202, end: 20060206
  2. VORICONAZOLE [Suspect]
     Indication: DRUG-INDUCED LIVER INJURY
     Dates: start: 20060202, end: 20060206
  3. LEVOFLOXACIN [Concomitant]
  4. VALACYCLOVIR [Concomitant]
  5. CYCLOSPORINE [Concomitant]
  6. PREDNISONE [Concomitant]
  7. ALLOPURINOL [Concomitant]
  8. VORICONAZOLE [Concomitant]
  9. CEFTRIAXONE [Concomitant]
  10. IMIPENEM [Concomitant]
  11. CEFEPIME HCL [Concomitant]
  12. ESOMEPRAZOLE [Concomitant]
  13. ACETAMINOPHEN [Concomitant]
  14. AMBIEN [Concomitant]
  15. MORPHINE [Concomitant]
  16. ALLOPURINOL [Concomitant]
  17. VANCOMYCIN [Concomitant]
  18. NEXIUM [Concomitant]
  19. BENADRYL [Concomitant]
  20. CASPOFUNGIN [Concomitant]
  21. KCL [Concomitant]
  22. PLATELETS [Concomitant]
  23. DEXAMETHASONE [Concomitant]
  24. PHENERGAN [Concomitant]
  25. PROCHLORPERAZINE [Concomitant]
  26. HEPARIN [Concomitant]

REACTIONS (3)
  - Aspartate aminotransferase increased [None]
  - Alanine aminotransferase increased [None]
  - Drug-induced liver injury [None]
